FAERS Safety Report 5904188-2 (Version None)
Quarter: 2008Q4

REPORT INFORMATION
  Report Type: 
  Country: None (occurrence: None)
  Receive Date: 20081001
  Receipt Date: 20080926
  Transmission Date: 20090506
  Serious: Yes (Other)
  Sender: FDA-Public Use
  Company Number: GB-TEVA-178014ISR

PATIENT
  Age: 36 Year
  Sex: Male
  Weight: 95.2 kg

DRUGS (1)
  1. ZOLPIDEM [Suspect]
     Indication: INSOMNIA
     Route: 048
     Dates: start: 20080801, end: 20080901

REACTIONS (1)
  - PSYCHOTIC DISORDER [None]
